FAERS Safety Report 10043495 (Version 1)
Quarter: 2014Q1

REPORT INFORMATION
  Report Type: Report from Study
  Country: ES (occurrence: ES)
  Receive Date: 20140328
  Receipt Date: 20140328
  Transmission Date: 20141002
  Serious: Yes (Other)
  Sender: FDA-Public Use
  Company Number: ES-BAYER-2014-040646

PATIENT
  Age: 96 Year
  Sex: Male

DRUGS (2)
  1. ADIRO 100 MG COMPRIMIDOS RECUBIERTOS , 30 COMPRIMIDOS [Suspect]
     Indication: ACUTE MYOCARDIAL INFARCTION
     Dosage: 100 MG, QD
     Route: 065
     Dates: start: 2011, end: 20140124
  2. PLAVIX [Suspect]
     Indication: ACUTE MYOCARDIAL INFARCTION
     Dosage: UNK
     Route: 065
     Dates: start: 2011

REACTIONS (1)
  - Iron deficiency anaemia [Recovering/Resolving]
